FAERS Safety Report 7623054-8 (Version None)
Quarter: 2011Q3

REPORT INFORMATION
  Report Type: 
  Country: None (occurrence: None)
  Receive Date: 20110720
  Receipt Date: 20110707
  Transmission Date: 20111222
  Serious: Yes (Death)
  Sender: FDA-Public Use
  Company Number: US-PFIZER INC-2010001466

PATIENT
  Age: 54 Year
  Sex: Female

DRUGS (5)
  1. AMLODIPINE BESYLATE [Suspect]
     Dosage: UNK
     Route: 048
  2. PRIMIDONE [Suspect]
     Route: 048
  3. ATENOLOL [Suspect]
     Dosage: UNK
     Route: 048
  4. LISINOPRIL [Suspect]
     Dosage: UNK
     Route: 048
  5. ZOLPIDEM [Suspect]
     Dosage: UNK
     Route: 048

REACTIONS (1)
  - COMPLETED SUICIDE [None]
